FAERS Safety Report 10347628 (Version 1)
Quarter: 2014Q3

REPORT INFORMATION
  Report Type: Spontaneous
  Country: FR (occurrence: FR)
  Receive Date: 20140729
  Receipt Date: 20140729
  Transmission Date: 20150326
  Serious: Yes (Hospitalization)
  Sender: FDA-Public Use
  Company Number: FR-PFIZER INC-2014207733

PATIENT
  Age: 75 Year
  Sex: Male

DRUGS (10)
  1. AVLOCARDYL [Concomitant]
     Active Substance: PROPRANOLOL HYDROCHLORIDE
     Dosage: UNK
  2. LASILIX [Concomitant]
     Active Substance: FUROSEMIDE
     Dosage: UNK
  3. TARDYFERON [Concomitant]
     Active Substance: FERROUS SULFATE\FOLIC ACID
     Dosage: UNK
  4. JOSIR [Concomitant]
     Active Substance: TAMSULOSIN
     Dosage: UNK
  5. SPECIAFOLDINE [Concomitant]
     Active Substance: FOLIC ACID
     Dosage: UNK
  6. DUPHALAC [Concomitant]
     Active Substance: LACTULOSE
     Dosage: UNK
  7. ALDACTONE [Suspect]
     Active Substance: SPIRONOLACTONE
     Dosage: UNK
     Route: 048
     Dates: end: 20140628
  8. CALCIPARINE [Suspect]
     Active Substance: HEPARIN CALCIUM
     Dosage: 20000 IU, 2X/DAY
     Route: 058
     Dates: start: 201405, end: 20140629
  9. LANTUS [Concomitant]
     Active Substance: INSULIN GLARGINE
     Dosage: UNK
  10. HUMALOG [Concomitant]
     Active Substance: INSULIN LISPRO
     Dosage: UNK

REACTIONS (8)
  - Renal failure acute [Recovered/Resolved]
  - Rectal haemorrhage [Recovered/Resolved]
  - Muscle haemorrhage [Recovered/Resolved]
  - Anaemia [Recovered/Resolved]
  - Fall [Recovered/Resolved]
  - Rhabdomyolysis [Recovered/Resolved]
  - Confusional state [Recovered/Resolved]
  - Hyperkalaemia [Recovered/Resolved]

NARRATIVE: CASE EVENT DATE: 201406
